FAERS Safety Report 12185773 (Version 3)
Quarter: 2016Q2

REPORT INFORMATION
  Report Type: Spontaneous
  Country: US (occurrence: US)
  Receive Date: 20160316
  Receipt Date: 20160502
  Transmission Date: 20160815
  Serious: Yes (Other)
  Sender: FDA-Public Use
  Company Number: US-AMGEN-USASP2016031309

PATIENT
  Age: 70 Year
  Sex: Male

DRUGS (4)
  1. ENBREL [Suspect]
     Active Substance: ETANERCEPT
     Dosage: 50 MG, QWK
     Route: 065
     Dates: start: 201601
  2. METHOTREXATE [Suspect]
     Active Substance: METHOTREXATE
     Indication: PRODUCT USED FOR UNKNOWN INDICATION
     Dosage: 2.5 MG, QWK
     Route: 065
  3. HUMIRA [Suspect]
     Active Substance: ADALIMUMAB
     Indication: PRODUCT USED FOR UNKNOWN INDICATION
     Dosage: 40 MG, ONCE EVERY 2 WEEKS
     Route: 065
     Dates: start: 201412, end: 201603
  4. ENBREL [Suspect]
     Active Substance: ETANERCEPT
     Indication: RHEUMATOID ARTHRITIS
     Dosage: 50 MG, QWK
     Route: 065
     Dates: start: 201009, end: 201412

REACTIONS (19)
  - Inflammation [Unknown]
  - Condition aggravated [Unknown]
  - Pulmonary mass [Not Recovered/Not Resolved]
  - General physical health deterioration [Unknown]
  - Colitis ulcerative [Unknown]
  - Peripheral swelling [Unknown]
  - Activities of daily living impaired [Unknown]
  - Aneurysm [Unknown]
  - Rheumatoid arthritis [Unknown]
  - Aortic aneurysm [Unknown]
  - Cholelithiasis [Unknown]
  - Laboratory test abnormal [Unknown]
  - Joint range of motion decreased [Unknown]
  - Cerebrovascular accident [Unknown]
  - Pain [Unknown]
  - Hepatic lesion [Unknown]
  - Lung disorder [Not Recovered/Not Resolved]
  - Joint swelling [Unknown]
  - Drug ineffective [Unknown]

NARRATIVE: CASE EVENT DATE: 2015
